FAERS Safety Report 9171637 (Version 1)
Quarter: 2013Q1

REPORT INFORMATION
  Report Type: Spontaneous
  Country: GR (occurrence: GR)
  Receive Date: 20130319
  Receipt Date: 20130319
  Transmission Date: 20140127
  Serious: Yes (Hospitalization)
  Sender: FDA-Public Use
  Company Number: GR-GLAXOSMITHKLINE-B0875710A

PATIENT
  Age: 52 Year
  Sex: Male

DRUGS (2)
  1. PROPAFENONE [Suspect]
     Indication: TACHYARRHYTHMIA
     Route: 065
  2. SOTALOL [Suspect]
     Indication: TACHYARRHYTHMIA
     Route: 065

REACTIONS (2)
  - Drug ineffective [Unknown]
  - Drug interaction [Unknown]
